FAERS Safety Report 7867564-7 (Version None)
Quarter: 2011Q4

REPORT INFORMATION
  Report Type: 
  Country: None (occurrence: None)
  Receive Date: 20111028
  Receipt Date: 20111020
  Transmission Date: 20120403
  Serious: Yes (Hospitalization, Other)
  Sender: FDA-Public Use
  Company Number: PHHY2011US32755

PATIENT
  Age: 9 Year
  Sex: Female

DRUGS (2)
  1. TOBI [Suspect]
     Indication: CYSTIC FIBROSIS
     Dosage: 300 MG, BID, 28 DAYS ON AND 28 DAYS OFF
     Dates: start: 20110113
  2. PULMOZYME [Concomitant]

REACTIONS (4)
  - UPPER RESPIRATORY TRACT INFECTION [None]
  - LUNG INFECTION [None]
  - CYSTIC FIBROSIS [None]
  - PSEUDOMONAS INFECTION [None]
